FAERS Safety Report 9549648 (Version 1)
Quarter: 2013Q3

REPORT INFORMATION
  Report Type: Spontaneous
  Country: FR (occurrence: FR)
  Receive Date: 20130924
  Receipt Date: 20130924
  Transmission Date: 20140515
  Serious: Yes (Hospitalization, Other)
  Sender: FDA-Public Use
  Company Number: FR-ELI_LILLY_AND_COMPANY-FR201309004122

PATIENT
  Sex: 0

DRUGS (14)
  1. ADCIRCA [Suspect]
     Dosage: 20 MG, QD
     Route: 064
     Dates: end: 20130227
  2. ADCIRCA [Suspect]
     Dosage: 20 MG, QD
     Route: 064
     Dates: end: 20130227
  3. SECTRAL [Concomitant]
     Dosage: 100 MG, BID
     Route: 064
  4. SECTRAL [Concomitant]
     Dosage: 100 MG, BID
     Route: 064
  5. TRACLEER [Concomitant]
     Dosage: 125 MG, BID
     Route: 064
  6. TRACLEER [Concomitant]
     Dosage: 125 MG, BID
     Route: 064
  7. PREVISCAN [Concomitant]
     Route: 064
  8. PREVISCAN [Concomitant]
     Route: 064
  9. FRAXODI [Concomitant]
     Route: 064
  10. FRAXODI [Concomitant]
     Route: 064
  11. SANMIGRAN [Concomitant]
     Route: 064
  12. SANMIGRAN [Concomitant]
     Route: 064
  13. LEVOTHYROX [Concomitant]
     Route: 064
  14. LEVOTHYROX [Concomitant]
     Route: 064

REACTIONS (4)
  - Acute respiratory distress syndrome [Unknown]
  - Premature baby [Unknown]
  - Small for dates baby [Unknown]
  - Foetal exposure during pregnancy [Recovered/Resolved]
